FAERS Safety Report 25981389 (Version 1)
Quarter: 2025Q4

REPORT INFORMATION
  Report Type: Spontaneous
  Country: GB (occurrence: GB)
  Receive Date: 20251030
  Receipt Date: 20251030
  Transmission Date: 20260117
  Serious: Yes (Other)
  Sender: Karo Pharma
  Company Number: GB-Karo Pharma-2187612

PATIENT
  Age: 20 Year
  Sex: Female

DRUGS (1)
  1. TERBINAFINE [Suspect]
     Active Substance: TERBINAFINE
     Indication: Product used for unknown indication

REACTIONS (3)
  - Confusional state [Not Recovered/Not Resolved]
  - Nausea [Recovering/Resolving]
  - Memory impairment [Not Recovered/Not Resolved]
